FAERS Safety Report 8015794-6 (Version None)
Quarter: 2011Q4

REPORT INFORMATION
  Report Type: 
  Country: None (occurrence: None)
  Receive Date: 20111230
  Receipt Date: 20111220
  Transmission Date: 20120403
  Serious: Yes (Other)
  Sender: FDA-Public Use
  Company Number: US-ROCHE-1024015

PATIENT
  Sex: Female

DRUGS (1)
  1. HERCEPTIN [Suspect]
     Indication: BREAST CANCER METASTATIC
     Route: 065

REACTIONS (6)
  - PAIN IN EXTREMITY [None]
  - DISEASE PROGRESSION [None]
  - MUSCULAR WEAKNESS [None]
  - SPINAL DISORDER [None]
  - METASTASES TO CENTRAL NERVOUS SYSTEM [None]
  - BREAST CANCER METASTATIC [None]
